FAERS Safety Report 5395659-9 (Version None)
Quarter: 2007Q3

REPORT INFORMATION
  Report Type: 
  Country: None (occurrence: None)
  Receive Date: 20070724
  Receipt Date: 20070717
  Transmission Date: 20080115
  Serious: Yes (Hospitalization, Other)
  Sender: FDA-Public Use
  Company Number: GB-ROXANE LABORATORIES, INC-2007-BP-17516RO

PATIENT
  Age: 67 Year
  Sex: Female

DRUGS (3)
  1. DIAZEPAM [Suspect]
  2. MIRTAZAPINE [Suspect]
  3. VALPROATE SODIUM [Suspect]
     Indication: CONVULSION

REACTIONS (9)
  - ABDOMINAL PAIN [None]
  - BRADYKINESIA [None]
  - CEREBRAL ATROPHY [None]
  - DYSPHONIA [None]
  - FAECALOMA [None]
  - MASKED FACIES [None]
  - MUSCLE RIGIDITY [None]
  - PARKINSON'S DISEASE [None]
  - TREMOR [None]
